FAERS Safety Report 9726101 (Version 3)
Quarter: 2014Q3

REPORT INFORMATION
  Report Type: Spontaneous
  Country: US (occurrence: US)
  Receive Date: 20131203
  Receipt Date: 20140912
  Transmission Date: 20150326
  Serious: Yes (Hospitalization, Other)
  Sender: FDA-Public Use
  Company Number: US-BAYER-2013-144409

PATIENT
  Age: 43 Year
  Sex: Female
  Weight: 62.59 kg

DRUGS (8)
  1. MIRENA [Suspect]
     Active Substance: LEVONORGESTREL
     Indication: CONTRACEPTION
     Dosage: 20 MCG/24HR, CONT
     Route: 015
     Dates: start: 20080425, end: 20100204
  2. SYNTHROID [Concomitant]
     Active Substance: LEVOTHYROXINE SODIUM
     Indication: HYPOTHYROIDISM
     Dosage: UNK
     Dates: start: 1993
  3. BUPROPION [Concomitant]
     Active Substance: BUPROPION
     Dosage: UNK
  4. SERTRALINE [Concomitant]
     Active Substance: SERTRALINE HYDROCHLORIDE
  5. AMBIEN [Concomitant]
     Active Substance: ZOLPIDEM TARTRATE
     Indication: SLEEP DISORDER THERAPY
     Dosage: UNK
     Dates: start: 2009
  6. LIPITOR [Concomitant]
     Active Substance: ATORVASTATIN CALCIUM
     Indication: BLOOD CHOLESTEROL INCREASED
     Dosage: UNK
     Dates: start: 2006
  7. ZOLOFT [Concomitant]
     Active Substance: SERTRALINE HYDROCHLORIDE
  8. ZOLPIDEM [Concomitant]
     Active Substance: ZOLPIDEM\ZOLPIDEM TARTRATE

REACTIONS (12)
  - Anxiety [None]
  - Genital haemorrhage [None]
  - Procedural haemorrhage [None]
  - Urinary tract infection [None]
  - Vomiting [None]
  - Depression [None]
  - Device dislocation [None]
  - Device issue [None]
  - Bacterial infection [None]
  - Procedural pain [None]
  - Injury [None]
  - Dyspareunia [None]

NARRATIVE: CASE EVENT DATE: 20100204
